FAERS Safety Report 7829524-1 (Version None)
Quarter: 2011Q4

REPORT INFORMATION
  Report Type: 
  Country: None (occurrence: None)
  Receive Date: 20111020
  Receipt Date: 20111013
  Transmission Date: 20120403
  Serious: Yes (Hospitalization, Disabling)
  Sender: FDA-Public Use
  Company Number: US-MERCK-1104USA00702

PATIENT
  Age: 65 Year
  Sex: Female

DRUGS (2)
  1. FOSAMAX [Suspect]
     Indication: OSTEOPENIA
     Route: 048
     Dates: start: 20020101, end: 20100101
  2. FOSAMAX PLUS D [Suspect]
     Indication: OSTEOPENIA
     Route: 048
     Dates: start: 20060905, end: 20100801

REACTIONS (6)
  - FOOT FRACTURE [None]
  - BONE DENSITY DECREASED [None]
  - SCOLIOSIS [None]
  - FRACTURE DELAYED UNION [None]
  - IMPAIRED HEALING [None]
  - FEMUR FRACTURE [None]
